FAERS Safety Report 18820312 (Version 2)
Quarter: 2021Q2

REPORT INFORMATION
  Report Type: Report from Study
  Country: BR (occurrence: BR)
  Receive Date: 20210202
  Receipt Date: 20210509
  Transmission Date: 20210717
  Serious: Yes (Other)
  Sender: FDA-Public Use
  Company Number: NVSC2021BR018577

PATIENT
  Age: 67 Year
  Sex: Female

DRUGS (3)
  1. LEVOFLOXACIN. [Concomitant]
     Active Substance: LEVOFLOXACIN
     Indication: ANTIBIOTIC THERAPY
     Dosage: UNK
     Route: 065
  2. COSENTYX [Suspect]
     Active Substance: SECUKINUMAB
     Indication: PRODUCT USED FOR UNKNOWN INDICATION
     Dosage: 300 MG, UNKNOWN (STARTED 1 YEAR AGO)
     Route: 065
     Dates: end: 20201215
  3. COSENTYX [Suspect]
     Active Substance: SECUKINUMAB
     Dosage: 150 MG, UNKNOWN
     Route: 065
     Dates: start: 20210121, end: 20210121

REACTIONS (11)
  - Glossodynia [Recovering/Resolving]
  - Pruritus [Recovered/Resolved]
  - Tongue discolouration [Recovered/Resolved]
  - Dengue fever [Recovered/Resolved]
  - Product dose omission issue [Unknown]
  - Burn oral cavity [Recovering/Resolving]
  - Plicated tongue [Recovering/Resolving]
  - Diabetes mellitus [Unknown]
  - Tongue disorder [Not Recovered/Not Resolved]
  - Ageusia [Recovering/Resolving]
  - Tongue erythema [Recovering/Resolving]

NARRATIVE: CASE EVENT DATE: 202006
